FAERS Safety Report 6607048-7 (Version None)
Quarter: 2010Q1

REPORT INFORMATION
  Report Type: 
  Country: None (occurrence: None)
  Receive Date: 20100219
  Receipt Date: 20100208
  Transmission Date: 20100710
  Serious: Yes (Life-Threatening, Hospitalization)
  Sender: FDA-Public Use
  Company Number: USA/USA/10/0009253

PATIENT
  Age: 48 Year
  Sex: Female

DRUGS (4)
  1. GLIMEPIRIDE [Suspect]
     Indication: DIABETES MELLITUS
     Dosage: 4 MG, 2 IN 1 D, PER ORAL
     Route: 048
     Dates: end: 20091201
  2. METFORMIN HCL [Suspect]
     Indication: DIABETES MELLITUS
     Dosage: 500 MG, 2 IN 1 D, PER ORAL
     Route: 048
  3. AVANDIA [Suspect]
     Indication: DIABETES MELLITUS
     Dosage: 4 MG, 1 IN 1 D, PER ORAL
     Route: 048
     Dates: end: 20091201
  4. LISINOPRIL [Suspect]
     Indication: HYPERTENSION
     Dosage: 20 MG, 1 IN 1 D, PER ORAL
     Route: 048

REACTIONS (7)
  - BLOOD GLUCOSE INCREASED [None]
  - DIZZINESS [None]
  - FLUID RETENTION [None]
  - HYPERTENSION [None]
  - LOSS OF CONSCIOUSNESS [None]
  - WOUND INFECTION [None]
  - WOUND SECRETION [None]
